FAERS Safety Report 4398783-2 (Version None)
Quarter: 2004Q3

REPORT INFORMATION
  Report Type: 
  Country: None (occurrence: None)
  Receive Date: 20040712
  Receipt Date: 20040621
  Transmission Date: 20050211
  Serious: Yes (Other)
  Sender: FDA-Public Use
  Company Number: USA040670689

PATIENT
  Sex: Female

DRUGS (1)
  1. EVISTA [Suspect]
     Dates: end: 20000101

REACTIONS (1)
  - CORONARY ARTERY SURGERY [None]
